FAERS Safety Report 4496410-7 (Version None)
Quarter: 2004Q4

REPORT INFORMATION
  Report Type: 
  Country: None (occurrence: None)
  Receive Date: 20041108
  Receipt Date: 20041108
  Transmission Date: 20050328
  Serious: Yes (Other)
  Sender: FDA-Public Use
  Company Number: None

PATIENT
  Age: 11 Year
  Sex: Male

DRUGS (1)
  1. CONCERTA [Suspect]
     Dosage: 72 MGM
     Dates: start: 20041105

REACTIONS (4)
  - DYSTONIA [None]
  - HEART RATE INCREASED [None]
  - PAIN [None]
  - TREMOR [None]
